FAERS Safety Report 9615443 (Version 2)
Quarter: 2014Q1

REPORT INFORMATION
  Report Type: Spontaneous
  Country: DK (occurrence: DE)
  Receive Date: 20131011
  Receipt Date: 20140206
  Transmission Date: 20141002
  Serious: Yes (Other)
  Sender: FDA-Public Use
  Company Number: DE-FRI-1000049927

PATIENT
  Age: 25 Year
  Sex: Female
  Weight: 50 kg

DRUGS (4)
  1. ESCITALOPRAM [Suspect]
     Indication: DEPRESSION
     Dosage: 30 MG
     Route: 048
     Dates: start: 20120530, end: 20120731
  2. ESCITALOPRAM [Suspect]
     Indication: ANOREXIA NERVOSA
  3. ESCITALOPRAM [Suspect]
     Indication: DEPRESSION
     Dosage: 20 MG
     Route: 048
     Dates: end: 20130129
  4. ESCITALOPRAM [Suspect]
     Indication: ANOREXIA NERVOSA
     Dosage: 10 MG
     Route: 048
     Dates: start: 20130130, end: 20130504

REACTIONS (4)
  - Vasculitis [Recovering/Resolving]
  - Cyanosis [Recovering/Resolving]
  - Extremity necrosis [Recovering/Resolving]
  - Prescribed overdose [Recovering/Resolving]
